FAERS Safety Report 5703525-1 (Version None)
Quarter: 2008Q2

REPORT INFORMATION
  Report Type: 
  Country: None (occurrence: None)
  Receive Date: 20080411
  Receipt Date: 20080401
  Transmission Date: 20081010
  Serious: Yes (Other)
  Sender: FDA-Public Use
  Company Number: US-PFIZER INC-2008030625

PATIENT
  Sex: Female

DRUGS (4)
  1. CHANTIX [Suspect]
     Indication: SMOKING CESSATION THERAPY
     Route: 048
  2. VITAMINS [Concomitant]
  3. ANTIOXIDANTS [Concomitant]
  4. TPN [Concomitant]

REACTIONS (4)
  - AGITATION [None]
  - DEPRESSED MOOD [None]
  - HOSTILITY [None]
  - SUICIDAL IDEATION [None]
